FAERS Safety Report 24160494 (Version 2)
Quarter: 2024Q3

REPORT INFORMATION
  Report Type: Report from Study
  Country: US (occurrence: US)
  Receive Date: 20240801
  Receipt Date: 20240803
  Transmission Date: 20241017
  Serious: Yes (Hospitalization, Other)
  Sender: ABBVIE
  Company Number: US-ABBVIE-5859602

PATIENT
  Age: 72 Year
  Sex: Male

DRUGS (1)
  1. CREON [Suspect]
     Active Substance: PANCRELIPASE AMYLASE\PANCRELIPASE LIPASE\PANCRELIPASE PROTEASE
     Indication: Product used for unknown indication
     Dosage: UNKNOWN
     Route: 048
     Dates: start: 202303

REACTIONS (5)
  - Blood potassium decreased [Recovering/Resolving]
  - Blindness [Unknown]
  - Magnesium deficiency [Unknown]
  - Sepsis [Unknown]
  - Gait inability [Unknown]

NARRATIVE: CASE EVENT DATE: 20240726
